FAERS Safety Report 11138317 (Version 2)
Quarter: 2015Q2

REPORT INFORMATION
  Report Type: Spontaneous
  Country: US (occurrence: US)
  Receive Date: 20150526
  Receipt Date: 20150626
  Transmission Date: 20150821
  Serious: Yes (Hospitalization, Other)
  Sender: FDA-Public Use
  Company Number: US-AMGEN-USASP2015050368

PATIENT
  Age: 58 Year
  Sex: Female

DRUGS (1)
  1. ENBREL [Suspect]
     Active Substance: ETANERCEPT
     Indication: RHEUMATOID ARTHRITIS
     Dosage: 50 MG, QWK
     Route: 065
     Dates: start: 20100101, end: 20150521

REACTIONS (14)
  - Hypoglycaemia [Recovered/Resolved]
  - Onychomycosis [Recovered/Resolved]
  - Impaired gastric emptying [Recovered/Resolved]
  - Rheumatoid arthritis [Not Recovered/Not Resolved]
  - Mass [Recovered/Resolved]
  - Wound infection [Recovered/Resolved]
  - Fall [Not Recovered/Not Resolved]
  - Upper limb fracture [Not Recovered/Not Resolved]
  - Mental impairment [Recovered/Resolved]
  - Myocardial infarction [Recovered/Resolved]
  - Loss of consciousness [Recovered/Resolved]
  - Injection site pain [Not Recovered/Not Resolved]
  - Gait disturbance [Recovered/Resolved]
  - Dizziness [Recovered/Resolved]

NARRATIVE: CASE EVENT DATE: 2010
